FAERS Safety Report 5625918-3 (Version None)
Quarter: 2008Q1

REPORT INFORMATION
  Report Type: 
  Country: None (occurrence: None)
  Receive Date: 20080212
  Receipt Date: 20080212
  Transmission Date: 20080703
  Serious: Yes (Hospitalization)
  Sender: FDA-Public Use
  Company Number: None

PATIENT
  Age: 20 Month
  Sex: Male

DRUGS (2)
  1. RACEPINEPHRINE  2.25% -S2 BRAND-   2.25% -11.25MG PER 0.5ML-   NEPHRON [Suspect]
     Indication: CROUP INFECTIOUS
     Dosage: 0.5ML  ONCE  INHAL
     Route: 055
     Dates: start: 20080119, end: 20080119
  2. DEXAMETHASONE TAB [Concomitant]

REACTIONS (4)
  - DEPRESSED LEVEL OF CONSCIOUSNESS [None]
  - HYPOXIA [None]
  - OXYGEN SATURATION DECREASED [None]
  - PHARMACEUTICAL PRODUCT COMPLAINT [None]
